FAERS Safety Report 22317981 (Version 1)
Quarter: 2023Q2

REPORT INFORMATION
  Report Type: Spontaneous
  Country: US (occurrence: US)
  Receive Date: 20230515
  Receipt Date: 20230515
  Transmission Date: 20230721
  Serious: No
  Sender: FDA-Public Use
  Company Number: US-UCBSA-2022021255

PATIENT
  Sex: Female

DRUGS (3)
  1. NEUPRO [Interacting]
     Active Substance: ROTIGOTINE
     Indication: Restless legs syndrome
     Dosage: 2 MILLIGRAM
  2. ZANAFLEX [Interacting]
     Active Substance: TIZANIDINE HYDROCHLORIDE
     Indication: Product used for unknown indication
  3. MIRAPEX [Interacting]
     Active Substance: PRAMIPEXOLE DIHYDROCHLORIDE
     Indication: Product used for unknown indication

REACTIONS (4)
  - Dizziness [Recovered/Resolved]
  - Hypotension [Recovered/Resolved]
  - Speech disorder [Recovered/Resolved]
  - Drug interaction [Recovered/Resolved]
